FAERS Safety Report 6675461-8 (Version None)
Quarter: 2010Q2

REPORT INFORMATION
  Report Type: 
  Country: None (occurrence: None)
  Receive Date: 20100409
  Receipt Date: 20100405
  Transmission Date: 20101027
  Serious: Yes (Other)
  Sender: FDA-Public Use
  Company Number: A0853949A

PATIENT
  Age: 69 Year
  Sex: Female
  Weight: 100 kg

DRUGS (1)
  1. AVANDIA [Suspect]
     Dosage: 4MG PER DAY
     Route: 048
     Dates: start: 20081101, end: 20090801

REACTIONS (1)
  - MYOCARDIAL INFARCTION [None]
